FAERS Safety Report 4437545-4 (Version None)
Quarter: 2004Q3

REPORT INFORMATION
  Report Type: 
  Country: None (occurrence: None)
  Receive Date: 20040827
  Receipt Date: 20040817
  Transmission Date: 20050211
  Serious: Yes (Life-Threatening)
  Sender: FDA-Public Use
  Company Number: 2004-119423-NL

PATIENT
  Age: 15 Year
  Sex: Female

DRUGS (4)
  1. PANCURONIUM BROMIDE [Suspect]
     Dosage: 5 MG ONCE
     Route: 042
     Dates: start: 20040729, end: 20040729
  2. APROTININ [Suspect]
     Dosage: 500 ML ONCE
     Route: 042
     Dates: start: 20040729, end: 20040729
  3. MIDAZOLAM HYDROCHLORIDE [Suspect]
     Dosage: 5 MG ONCE
     Route: 042
     Dates: start: 20040729, end: 20040729
  4. SUFENTANIL CITRATE [Suspect]
     Dosage: 20 UG ONCE
     Route: 042
     Dates: start: 20040729, end: 20040729

REACTIONS (1)
  - ANAPHYLACTIC SHOCK [None]
